FAERS Safety Report 15136066 (Version 1)
Quarter: 2018Q3

REPORT INFORMATION
  Report Type: Spontaneous
  Country: AT (occurrence: AT)
  Receive Date: 20180712
  Receipt Date: 20180712
  Transmission Date: 20181010
  Serious: Yes (Other)
  Sender: FDA-Public Use
  Company Number: AT-MYLANLABS-2018M1049778

PATIENT
  Age: 39 Year
  Sex: Female
  Weight: 64 kg

DRUGS (2)
  1. PREDNISOLONE. [Suspect]
     Active Substance: PREDNISOLONE
     Indication: PRODUCT USED FOR UNKNOWN INDICATION
     Dosage: 25 MG, QD, AFTER SOME WEEKS ADMINISTERED AT 5 MG/DAY
     Route: 065
  2. PREDNISOLONE. [Suspect]
     Active Substance: PREDNISOLONE
     Dosage: 5 MG, QD
     Route: 065

REACTIONS (10)
  - Bundle branch block right [Unknown]
  - Systolic dysfunction [Unknown]
  - Bundle branch block left [Unknown]
  - Ventricular hypokinesia [Unknown]
  - Atrial enlargement [Unknown]
  - Mitral valve incompetence [Unknown]
  - Diastolic dysfunction [Unknown]
  - Cardiomyopathy [Unknown]
  - Sinus tachycardia [Unknown]
  - Left ventricular enlargement [Unknown]
